FAERS Safety Report 19754473 (Version 4)
Quarter: 2021Q3

REPORT INFORMATION
  Report Type: Spontaneous
  Country: PL (occurrence: PL)
  Receive Date: 20210827
  Receipt Date: 20210914
  Transmission Date: 20211014
  Serious: Yes (Death, Hospitalization, Other)
  Sender: FDA-Public Use
  Company Number: PL-MYLANLABS-2021M1055702

PATIENT
  Age: 31 Year
  Sex: Female

DRUGS (10)
  1. OXYCODONE [Suspect]
     Active Substance: OXYCODONE
     Indication: PAIN
     Dosage: 10 MILLIGRAM, QD
     Route: 065
     Dates: start: 2020
  2. TEMOZOLOMIDE. [Suspect]
     Active Substance: TEMOZOLOMIDE
     Indication: CHEMOTHERAPY
     Dosage: UNK
     Route: 065
     Dates: start: 2019, end: 2019
  3. NALOXONE W/OXYCODONE [Suspect]
     Active Substance: NALOXONE HYDROCHLORIDE\OXYCODONE HYDROCHLORIDE
     Indication: PAIN
     Dosage: 40 MILLIGRAM, QD
     Route: 065
     Dates: start: 201908
  4. OXYCODONE [Suspect]
     Active Substance: OXYCODONE
     Dosage: 5 MILLIGRAM, PRN
     Route: 065
     Dates: start: 2020
  5. PROPRANOLOL [Suspect]
     Active Substance: PROPRANOLOL HYDROCHLORIDE
     Indication: PRODUCT USED FOR UNKNOWN INDICATION
     Dosage: 20 MILLIGRAM, QD
     Route: 065
     Dates: start: 2019
  6. OXYCODONE [Suspect]
     Active Substance: OXYCODONE
     Dosage: 20 MILLIGRAM, QD
     Route: 065
     Dates: start: 2019
  7. TRAMADOL + PARACETAMOL [Concomitant]
     Active Substance: ACETAMINOPHEN\TRAMADOL
     Indication: PAIN
     Dosage: 37.5MG+325MG
  8. CAPECITABINE. [Suspect]
     Active Substance: CAPECITABINE
     Indication: CHEMOTHERAPY
     Dosage: UNK
     Dates: start: 2019, end: 2019
  9. DROTAVERINE [Suspect]
     Active Substance: DROTAVERINE
     Indication: PRODUCT USED FOR UNKNOWN INDICATION
     Dosage: 40 MILLIGRAM, QD
     Route: 065
     Dates: start: 2019
  10. LEVOTHYROXINE. [Concomitant]
     Active Substance: LEVOTHYROXINE
     Indication: THYROID THERAPY
     Dosage: 75 MICROGRAM, QD

REACTIONS (15)
  - Epilepsy [Unknown]
  - Loss of consciousness [Unknown]
  - Asthenia [Unknown]
  - Drug intolerance [Unknown]
  - Constipation [Unknown]
  - Pain [Unknown]
  - Drug ineffective [Fatal]
  - Abdominal pain [Unknown]
  - Dysphoria [Unknown]
  - Impulse-control disorder [Unknown]
  - Discontinued product administered [Unknown]
  - Anaemia [Unknown]
  - Malignant neoplasm progression [Fatal]
  - Intentional product use issue [Unknown]
  - Dry mouth [Unknown]

NARRATIVE: CASE EVENT DATE: 2019
